FAERS Safety Report 4961835-X (Version None)
Quarter: 2006Q2

REPORT INFORMATION
  Report Type: 
  Country: None (occurrence: None)
  Receive Date: 20060404
  Receipt Date: 20060324
  Transmission Date: 20061013
  Serious: Yes (Other)
  Sender: FDA-Public Use
  Company Number: NL-GLAXOSMITHKLINE-B0418898A

PATIENT

DRUGS (1)
  1. RANITIDINE HYDROCHLORIDE [Suspect]
     Indication: GASTRIC DISORDER
     Route: 042

REACTIONS (5)
  - DIZZINESS [None]
  - FEELING COLD [None]
  - HYPERHIDROSIS [None]
  - INAPPROPRIATE SCHEDULE OF DRUG ADMINISTRATION [None]
  - SHOCK [None]
